FAERS Safety Report 7365995-5 (Version None)
Quarter: 2011Q1

REPORT INFORMATION
  Report Type: 
  Country: None (occurrence: None)
  Receive Date: 20110310
  Receipt Date: 20110301
  Transmission Date: 20110831
  Serious: Yes (Death, Hospitalization, Other)
  Sender: FDA-Public Use
  Company Number: 2011045240

PATIENT
  Age: 87 Year
  Sex: Female

DRUGS (15)
  1. LEVOTHYROXINE (LEVOTHYROXINE) [Concomitant]
  2. WARFARIN SODIUM [Suspect]
     Indication: DEEP VEIN THROMBOSIS
     Dosage: 3 MG
     Dates: start: 20100831, end: 20101007
  3. PHYTONADIONE [Concomitant]
  4. TAZOCIN (PIPERACILLIN SODIUM, TAZOBACTAM SODIUM) [Concomitant]
  5. TRIMETHOPRIM [Concomitant]
  6. IBUPROFEN [Suspect]
     Dosage: 600 MG, 3X/DAY
     Dates: start: 20080101
  7. FENTANYL [Concomitant]
  8. OMEPRAZOLE [Concomitant]
  9. ACETYLSALICYLIC ACID (ACETYLSALICYLIC ACID) [Concomitant]
  10. ZOPICLONE (ZOPICLONE) [Concomitant]
  11. DALTEPARIN SODIUM [Suspect]
     Indication: DEEP VEIN THROMBOSIS
     Dosage: 10000 IU, 1X/DAY
     Dates: start: 20100807, end: 20100919
  12. CO-AMOXICLAV (AMOXICILLIN TRIHYDRATE, CLAVULANATE POTASSIUM) [Concomitant]
  13. DIHYDROCODEINE COMPOUND [Concomitant]
  14. FUROSEMIDE [Concomitant]
  15. MOVICOL (MACROGOL, MPOTASSIUM CHLORIDE, SODIUM BICARBONATE, SODIUM CHL [Concomitant]

REACTIONS (9)
  - MALAISE [None]
  - GENERAL PHYSICAL HEALTH DETERIORATION [None]
  - DEEP VEIN THROMBOSIS [None]
  - INJECTION SITE HAEMORRHAGE [None]
  - HYPOREFLEXIA [None]
  - INTERNATIONAL NORMALISED RATIO INCREASED [None]
  - SOMNOLENCE [None]
  - CONTUSION [None]
  - HAEMOGLOBIN DECREASED [None]
